FAERS Safety Report 14454761 (Version 2)
Quarter: 2018Q2

REPORT INFORMATION
  Report Type: Spontaneous
  Country: US (occurrence: US)
  Receive Date: 20180129
  Receipt Date: 20180515
  Transmission Date: 20180711
  Serious: Yes (Hospitalization, Other)
  Sender: FDA-Public Use
  Company Number: US-DSJP-DSU-2017-139500

PATIENT

DRUGS (1)
  1. BENICAR HCT [Suspect]
     Active Substance: HYDROCHLOROTHIAZIDE\OLMESARTAN MEDOXOMIL
     Indication: PRODUCT USED FOR UNKNOWN INDICATION
     Dosage: 40/25MG, QD
     Route: 048
     Dates: start: 20080131, end: 20150209

REACTIONS (10)
  - Small intestinal obstruction [Unknown]
  - Haemorrhoids [Unknown]
  - Sprue-like enteropathy [Recovered/Resolved]
  - Large intestine polyp [Unknown]
  - Diverticulum [Unknown]
  - Gastrooesophageal reflux disease [Recovered/Resolved]
  - Constipation [Unknown]
  - Fall [Unknown]
  - Syncope [Unknown]
  - Acute kidney injury [Recovered/Resolved]

NARRATIVE: CASE EVENT DATE: 20080131
